FAERS Safety Report 5174818-4 (Version None)
Quarter: 2006Q4

REPORT INFORMATION
  Report Type: 
  Country: None (occurrence: None)
  Receive Date: 20061206
  Receipt Date: 20061124
  Transmission Date: 20070319
  Serious: Yes (Hospitalization)
  Sender: FDA-Public Use
  Company Number: 2006124340

PATIENT
  Age: 71 Year
  Sex: Male
  Weight: 65.2 kg

DRUGS (5)
  1. SUTENT [Suspect]
     Indication: METASTATIC RENAL CELL CARCINOMA
     Dosage: 50 MG (50 MG, 1 IN 1 D), ORAL
     Route: 048
     Dates: start: 20060915
  2. DEXAMETHASONE [Concomitant]
  3. SPIRIVA [Concomitant]
  4. TEBUTALINE SULFATE [Concomitant]
  5. SYMBICORT [Concomitant]

REACTIONS (1)
  - PEPTIC ULCER [None]
